FAERS Safety Report 13478306 (Version 2)
Quarter: 2017Q3

REPORT INFORMATION
  Report Type: Spontaneous
  Country: US (occurrence: US)
  Receive Date: 20170424
  Receipt Date: 20170728
  Transmission Date: 20171127
  Serious: No
  Sender: FDA-Public Use
  Company Number: US-AMGEN-USASP2017019088

PATIENT
  Age: 77 Year
  Sex: Male
  Weight: 91.16 kg

DRUGS (1)
  1. REPATHA [Suspect]
     Active Substance: EVOLOCUMAB
     Indication: DRUG INTOLERANCE
     Dosage: 140 MG, UNK
     Route: 065
     Dates: start: 20160913

REACTIONS (1)
  - Drug dose omission [Unknown]
